FAERS Safety Report 4336758-X (Version None)
Quarter: 2004Q1

REPORT INFORMATION
  Report Type: 
  Country: None (occurrence: None)
  Receive Date: 20040329
  Receipt Date: 20040109
  Transmission Date: 20041129
  Serious: No
  Sender: FDA-Public Use
  Company Number: USA040156212

PATIENT
  Age: 12 Year
  Sex: Male
  Weight: 106 kg

DRUGS (3)
  1. STRATTERA [Suspect]
     Indication: AFFECTIVE DISORDER
     Dosage: 18 MG/DAY
     Dates: start: 20040108
  2. STRATTERA [Suspect]
     Indication: ANXIETY
     Dosage: 18 MG/DAY
     Dates: start: 20040108
  3. STRATTERA [Suspect]
     Indication: ATTENTION DEFICIT/HYPERACTIVITY DISORDER
     Dosage: 18 MG/DAY
     Dates: start: 20040108

REACTIONS (3)
  - DRUG INEFFECTIVE [None]
  - PSYCHOMOTOR HYPERACTIVITY [None]
  - SOMNOLENCE [None]
